FAERS Safety Report 6480552 (Version 7)
Quarter: 2019Q1

REPORT INFORMATION
  Report Type: Spontaneous
  Country: GB (occurrence: GB)
  Receive Date: 20071204
  Receipt Date: 20190118
  Transmission Date: 20190418
  Serious: Yes (Hospitalization, Other)
  Sender: FDA-Public Use
  Company Number: GB-PFIZER INC-2007100074

PATIENT
  Age: 25 Year
  Sex: Female
  Weight: 68 kg

DRUGS (2)
  1. IMPLANON [Interacting]
     Active Substance: ETONOGESTREL
     Indication: CONTRACEPTION
     Dosage: UNK
     Dates: start: 20020509, end: 20041021
  2. SERTRALINE HCL [Suspect]
     Active Substance: SERTRALINE HYDROCHLORIDE
     Indication: ANTIDEPRESSANT THERAPY
     Dosage: 100 MG, 1X/DAY (FOR AN 18-MONTH PERIOD UP UNTIL APPROXIMATELY 2 MONTHS PRIOR TO HER PRESENTATION)
     Dates: start: 200302, end: 200407

REACTIONS (2)
  - Drug interaction [Recovering/Resolving]
  - Ectopic pregnancy [Recovering/Resolving]

NARRATIVE: CASE EVENT DATE: 20040922
